FAERS Safety Report 9007265 (Version 1)
Quarter: 2013Q1

REPORT INFORMATION
  Report Type: Spontaneous
  Country: US (occurrence: US)
  Receive Date: 20130110
  Receipt Date: 20130110
  Transmission Date: 20140127
  Serious: Yes (Life-Threatening, Other)
  Sender: FDA-Public Use
  Company Number: US-MERCK-1301USA002956

PATIENT
  Age: 65 Year
  Sex: Female

DRUGS (3)
  1. MONTELUKAST SODIUM [Suspect]
     Route: 048
  2. DIPHENHYDRAMINE HYDROCHLORIDE [Suspect]
     Route: 048
  3. METOPROLOL SUCCINATE [Suspect]
     Route: 048

REACTIONS (3)
  - Cardiac disorder [Unknown]
  - Amnesia [Unknown]
  - Convulsion [Unknown]
